FAERS Safety Report 8169325 (Version 3)
Quarter: 2012Q4

REPORT INFORMATION
  Report Type: 
  Country: US (occurrence: US)
  Receive Date: 20111005
  Receipt Date: 20121015
  Transmission Date: 20130627
  Serious: Yes (Other)
  Sender: FDA-Public Use
  Company Number: US-RB-023727-11

PATIENT
  Age: 24 None
  Sex: Female

DRUGS (3)
  1. SUBOXONE FILM [Suspect]
     Indication: PRODUCT USED FOR UNKNOWN INDICATION
     Dosage: Unknown dosing details
     Route: 065
  2. SUBUTEX [Suspect]
     Route: 060
     Dates: start: 20110222, end: 20110323
  3. SUBUTEX [Suspect]
     Indication: DRUG DEPENDENCE
     Route: 060
     Dates: start: 20110324

REACTIONS (4)
  - Premature baby [Recovered/Resolved]
  - Premature separation of placenta [Recovered/Resolved]
  - Wrong technique in drug usage process [Not Recovered/Not Resolved]
  - Exposure during pregnancy [Recovered/Resolved]
